FAERS Safety Report 14897555 (Version 2)
Quarter: 2018Q3

REPORT INFORMATION
  Report Type: Spontaneous
  Country: US (occurrence: US)
  Receive Date: 20180515
  Receipt Date: 20180808
  Transmission Date: 20181010
  Serious: No
  Sender: FDA-Public Use
  Company Number: US-ASTRAZENECA-2018SE62691

PATIENT
  Age: 27948 Day
  Sex: Female
  Weight: 73 kg

DRUGS (2)
  1. SYMBICORT [Suspect]
     Active Substance: BUDESONIDE\FORMOTEROL FUMARATE DIHYDRATE
     Indication: ASTHMA
     Dosage: 160/4.5 MCG, 2 INHALATIONS TWICE A DAY
     Route: 055
     Dates: start: 2018
  2. SYMBICORT [Suspect]
     Active Substance: BUDESONIDE\FORMOTEROL FUMARATE DIHYDRATE
     Indication: CHRONIC OBSTRUCTIVE PULMONARY DISEASE
     Dosage: 160/4.5 MCG, 2 INHALATIONS TWICE A DAY
     Route: 055
     Dates: start: 2018

REACTIONS (5)
  - Pneumonia [Unknown]
  - Device malfunction [Unknown]
  - Dyspnoea [Unknown]
  - Chest discomfort [Unknown]
  - Drug dose omission [Unknown]

NARRATIVE: CASE EVENT DATE: 20180504
